FAERS Safety Report 11246708 (Version 2)
Quarter: 2015Q3

REPORT INFORMATION
  Report Type: Report from Study
  Country: NL (occurrence: NL)
  Receive Date: 20150708
  Receipt Date: 20150724
  Transmission Date: 20151125
  Serious: Yes (Hospitalization, Other)
  Sender: FDA-Public Use
  Company Number: NL-AMGEN-NLDSL2015066408

PATIENT
  Age: 64 Year
  Sex: Male

DRUGS (2)
  1. XGEVA [Suspect]
     Active Substance: DENOSUMAB
     Indication: PRODUCT USED FOR UNKNOWN INDICATION
     Dosage: 1.70 ML (120 MG), Q4WK
     Route: 058
  2. CALCICHEW D3 [Concomitant]
     Active Substance: CALCIUM\CHOLECALCIFEROL
     Dosage: 500 MG, QD

REACTIONS (5)
  - Terminal state [Unknown]
  - Fall [Unknown]
  - Metastasis [Unknown]
  - Limb discomfort [Unknown]
  - Hospice care [Unknown]

NARRATIVE: CASE EVENT DATE: 20150626
